FAERS Safety Report 24280085 (Version 3)
Quarter: 2025Q1

REPORT INFORMATION
  Report Type: Spontaneous
  Country: GB (occurrence: GB)
  Receive Date: 20240904
  Receipt Date: 20250220
  Transmission Date: 20250408
  Serious: Yes (Other)
  Sender: AUROBINDO
  Company Number: GB-MHRA-MED-202408240949589110-FRWHK

PATIENT
  Age: 55 Day
  Sex: Male
  Weight: 89 kg

DRUGS (2)
  1. ATORVASTATIN [Suspect]
     Active Substance: ATORVASTATIN
     Indication: Product used for unknown indication
     Route: 065
     Dates: start: 20240813, end: 20240821
  2. LANSOPRAZOLE [Concomitant]
     Active Substance: LANSOPRAZOLE
     Indication: Product used for unknown indication
     Route: 065

REACTIONS (19)
  - Euphoric mood [Recovered/Resolved]
  - Depressed mood [Recovered/Resolved]
  - Musculoskeletal stiffness [Recovered/Resolved]
  - Myalgia [Recovered/Resolved]
  - Urinary retention [Recovered/Resolved]
  - Asthenia [Recovered/Resolved]
  - Back pain [Recovered/Resolved]
  - Dry eye [Recovered/Resolved]
  - Insomnia [Recovered/Resolved]
  - Initial insomnia [Recovered/Resolved]
  - Pain [Recovered/Resolved]
  - Pain in extremity [Recovered/Resolved]
  - Muscle twitching [Recovered/Resolved]
  - Tenderness [Unknown]
  - Urine output [Recovered/Resolved]
  - Eye pain [Recovered/Resolved]
  - Thirst [Recovered/Resolved]
  - Food craving [Recovered/Resolved]
  - Fatigue [Unknown]

NARRATIVE: CASE EVENT DATE: 19540815
